FAERS Safety Report 9156843 (Version 1)
Quarter: 2013Q1

REPORT INFORMATION
  Report Type: Spontaneous
  Country: CA (occurrence: CA)
  Receive Date: 20130312
  Receipt Date: 20130312
  Transmission Date: 20140127
  Serious: Yes (Hospitalization, Other)
  Sender: FDA-Public Use
  Company Number: CA-JNJFOC-20130113650

PATIENT
  Sex: Female

DRUGS (10)
  1. XARELTO [Suspect]
     Indication: ATRIAL FIBRILLATION
     Route: 048
     Dates: start: 201210
  2. XARELTO [Suspect]
     Indication: CEREBROVASCULAR ACCIDENT PROPHYLAXIS
     Route: 048
     Dates: start: 201210
  3. WARFARIN [Suspect]
     Indication: PRODUCT USED FOR UNKNOWN INDICATION
     Route: 065
  4. AMIODARONE [Concomitant]
     Dosage: TUESDAY, THURSDAY, SATURDAY, SUNDAY
     Route: 048
  5. AMIODARONE [Concomitant]
     Dosage: MONDAY, WEDNESDAY, FRIDAY
     Route: 048
  6. ATORVASTATIN [Concomitant]
     Route: 048
  7. FUROSEMIDE [Concomitant]
     Route: 048
  8. NITROGLYCERIN [Concomitant]
     Dosage: TOP
     Route: 048
  9. RAMIPRIL [Concomitant]
     Route: 048
  10. NITROLINGUAL [Concomitant]
     Route: 048

REACTIONS (5)
  - Gastrointestinal haemorrhage [Unknown]
  - Lower gastrointestinal haemorrhage [Recovered/Resolved]
  - Haemarthrosis [Recovered/Resolved]
  - Large intestine polyp [Recovered/Resolved]
  - Oedema [Recovered/Resolved]
